FAERS Safety Report 9684516 (Version 1)
Quarter: 2013Q4

REPORT INFORMATION
  Report Type: Spontaneous
  Country: DE (occurrence: DE)
  Receive Date: 20131112
  Receipt Date: 20131112
  Transmission Date: 20140711
  Serious: Yes (Hospitalization, Other)
  Sender: FDA-Public Use
  Company Number: DE-ASTRAZENECA-2013SE81118

PATIENT
  Age: 40 Year
  Sex: Male

DRUGS (22)
  1. SEROQUEL [Suspect]
     Route: 048
     Dates: start: 20120502, end: 20120508
  2. SEROQUEL [Suspect]
     Route: 048
     Dates: start: 20120509, end: 20120515
  3. SEROQUEL [Suspect]
     Route: 048
     Dates: start: 20120516, end: 20120521
  4. SEROQUEL [Suspect]
     Route: 048
     Dates: start: 20120522
  5. FLUOXETINE [Suspect]
     Route: 048
     Dates: start: 20120607, end: 20120614
  6. FLUOXETINE [Suspect]
     Route: 048
     Dates: start: 20120703, end: 20120712
  7. FLUOXETINE [Suspect]
     Route: 048
     Dates: end: 20120413
  8. FLUOXETINE [Suspect]
     Route: 048
     Dates: start: 20120414, end: 20120425
  9. FLUOXETINE [Suspect]
     Route: 048
     Dates: start: 20120426, end: 20120428
  10. FLUOXETINE [Suspect]
     Route: 048
     Dates: start: 20120429, end: 20120606
  11. FLUOXETINE [Suspect]
     Route: 048
     Dates: start: 20120615, end: 20120618
  12. FLUOXETINE [Suspect]
     Route: 048
     Dates: start: 20120619, end: 20120702
  13. QUILONUM [Suspect]
     Route: 048
     Dates: start: 20120529, end: 20120529
  14. QUILONUM [Suspect]
     Route: 048
     Dates: start: 20120530, end: 20120605
  15. QUILONUM [Suspect]
     Route: 048
     Dates: start: 20120606, end: 20120627
  16. QUILONUM [Suspect]
     Route: 048
     Dates: start: 20120628
  17. TILIDINE [Suspect]
     Route: 048
  18. ATOSIL [Suspect]
     Route: 048
     Dates: start: 20120419, end: 20120617
  19. PROPANOLOL [Concomitant]
     Route: 048
     Dates: end: 20120625
  20. PROPANOLOL [Concomitant]
     Route: 048
     Dates: start: 20120626
  21. FOLIC ACID [Concomitant]
     Route: 048
  22. NALTREXONE [Concomitant]
     Route: 048

REACTIONS (2)
  - Myoclonus [Recovered/Resolved]
  - Loss of consciousness [Recovered/Resolved]
